FAERS Safety Report 5633460-9 (Version None)
Quarter: 2008Q1

REPORT INFORMATION
  Report Type: 
  Country: None (occurrence: None)
  Receive Date: 20080221
  Receipt Date: 20080211
  Transmission Date: 20080703
  Serious: No
  Sender: FDA-Public Use
  Company Number: US-ELI_LILLY_AND_COMPANY-US200802002196

PATIENT
  Age: 58 Year
  Sex: Female

DRUGS (1)
  1. CYMBALTA [Suspect]
     Indication: DEPRESSION
     Dosage: 60 MG, DAILY (1/D)
     Dates: start: 20070901

REACTIONS (7)
  - ABDOMINAL PAIN [None]
  - CHROMATURIA [None]
  - FATIGUE [None]
  - NAUSEA [None]
  - PRURITUS [None]
  - RASH [None]
  - TREMOR [None]
